FAERS Safety Report 8209248-1 (Version None)
Quarter: 2012Q1

REPORT INFORMATION
  Report Type: 
  Country: None (occurrence: None)
  Receive Date: 20120314
  Receipt Date: 20120302
  Transmission Date: 20120608
  Serious: No
  Sender: FDA-Public Use
  Company Number: US-BAYER-2012-023060

PATIENT
  Age: 74 Year
  Sex: Female
  Weight: 56 kg

DRUGS (5)
  1. ALEVE (CAPLET) [Suspect]
     Indication: MYALGIA
     Dosage: 2 DF, QD
     Route: 048
     Dates: start: 20120228
  2. ASPIRIN [Concomitant]
     Route: 048
  3. NEXIUM [Concomitant]
  4. ERYTHROMYCIN [Concomitant]
  5. PENICILLIN [Concomitant]

REACTIONS (1)
  - DYSGEUSIA [None]
